FAERS Safety Report 17259258 (Version 1)
Quarter: 2020Q1

REPORT INFORMATION
  Report Type: Spontaneous
  Country: US (occurrence: US)
  Receive Date: 20200110
  Receipt Date: 20200110
  Transmission Date: 20200409
  Serious: No
  Sender: FDA-Public Use
  Company Number: US-SA-2020SA005959

PATIENT

DRUGS (10)
  1. ENBREL [Suspect]
     Active Substance: ETANERCEPT
     Route: 065
  2. RITUXAN [Suspect]
     Active Substance: RITUXIMAB
  3. SULFASALAZINE. [Suspect]
     Active Substance: SULFASALAZINE
     Dosage: 1 G, BID
     Route: 065
  4. XELJANZ XR [Suspect]
     Active Substance: TOFACITINIB CITRATE
     Dosage: 11 MG, QD
     Route: 065
  5. ARAVA [Suspect]
     Active Substance: LEFLUNOMIDE
  6. FOLIC ACID. [Suspect]
     Active Substance: FOLIC ACID
     Dosage: 1 G, QD
     Route: 065
  7. METHOTREXATE. [Suspect]
     Active Substance: METHOTREXATE
     Dosage: 15 MG, QW
     Route: 065
  8. HUMIRA [Suspect]
     Active Substance: ADALIMUMAB
     Route: 065
  9. ORENCIA [Suspect]
     Active Substance: ABATACEPT
     Route: 065
  10. ACTEMRA [Suspect]
     Active Substance: TOCILIZUMAB

REACTIONS (20)
  - Rash [Unknown]
  - Infection [Unknown]
  - Vaginal infection [Recovered/Resolved]
  - Musculoskeletal stiffness [Recovered/Resolved]
  - Rash [Unknown]
  - Joint swelling [Recovered/Resolved]
  - Lip swelling [Unknown]
  - Paraesthesia [Unknown]
  - Drug ineffective [Unknown]
  - Hypersensitivity [Unknown]
  - Swelling of eyelid [Unknown]
  - Nausea [Unknown]
  - Pain in extremity [Unknown]
  - Eye pruritus [Unknown]
  - Asthenia [Unknown]
  - Arthralgia [Recovered/Resolved]
  - Nervous system disorder [Unknown]
  - Gastrointestinal disorder [Unknown]
  - Peripheral swelling [Unknown]
  - Fatigue [Unknown]

NARRATIVE: CASE EVENT DATE: 201910
